FAERS Safety Report 19219410 (Version 1)
Quarter: 2021Q2

REPORT INFORMATION
  Report Type: Spontaneous
  Country: US (occurrence: US)
  Receive Date: 20210506
  Receipt Date: 20210506
  Transmission Date: 20210717
  Serious: No
  Sender: FDA-Public Use
  Company Number: US-ROCHE-2632676

PATIENT
  Sex: Male
  Weight: 85.35 kg

DRUGS (9)
  1. OFEV [Concomitant]
     Active Substance: NINTEDANIB
     Dosage: 1 CAPSULE BY MOUTH EVERY 12 HOURS
     Route: 048
  2. POTASSIUM CHLORIDE ER [Concomitant]
     Active Substance: POTASSIUM CHLORIDE
     Dosage: EXTENDED RELEASE?1 CAPSULE BY MOUTH DAILY
     Route: 048
  3. ESBRIET [Suspect]
     Active Substance: PIRFENIDONE
     Indication: IDIOPATHIC PULMONARY FIBROSIS
     Dosage: 267 MG
     Route: 048
  4. OFEV [Concomitant]
     Active Substance: NINTEDANIB
     Dosage: 1 CAPSULE BY MOUTH TWICE A DAY: TAKE 1 CAPSULE BY MOUTH TWICE DAILY WITH FOOD
     Route: 048
  5. PREDNISONE. [Concomitant]
     Active Substance: PREDNISONE
     Dosage: 1 TABLET BY MOUTH DAILY
     Route: 046
  6. OMEPRAZOLE. [Concomitant]
     Active Substance: OMEPRAZOLE
     Dosage: DELAYED RELEASE? 1 CAPSULE BY MOUTH DAILY
     Route: 048
  7. LASIX [Concomitant]
     Active Substance: FUROSEMIDE
     Dosage: 1 TABLET BY MOUTH DAILY
     Route: 048
  8. ASPRIN [Concomitant]
     Active Substance: ASPIRIN
     Dosage: TABLET , DELAYED RELEASE ? 1 TABLET BY MOUTH DAILY
     Route: 048
  9. VIT D [Concomitant]
     Active Substance: VITAMIN D NOS

REACTIONS (1)
  - Pruritus [Recovered/Resolved]
